FAERS Safety Report 21527423 (Version 1)
Quarter: 2022Q4

REPORT INFORMATION
  Report Type: Spontaneous
  Country: CA (occurrence: CA)
  Receive Date: 20221031
  Receipt Date: 20221031
  Transmission Date: 20230113
  Serious: Yes (Other)
  Sender: FDA-Public Use
  Company Number: None

PATIENT
  Age: 25 Year
  Sex: Male

DRUGS (4)
  1. METHOTREXATE [Suspect]
     Active Substance: METHOTREXATE
     Indication: Granulomatosis with polyangiitis
     Dosage: 1 EVERY 1 WEEKS
     Route: 048
  2. PREDNISONE ACETATE [Concomitant]
     Active Substance: PREDNISONE ACETATE
     Route: 048
  3. PREDNISONE ACETATE [Concomitant]
     Active Substance: PREDNISONE ACETATE
     Dosage: 1 EVERY 1 DAYS
  4. PREDNISONE ACETATE [Concomitant]
     Active Substance: PREDNISONE ACETATE
     Dosage: 1 EVERY 1 DAYS

REACTIONS (11)
  - Colitis [Unknown]
  - Condition aggravated [Unknown]
  - Diarrhoea [Unknown]
  - Haematochezia [Unknown]
  - Haematuria [Unknown]
  - Orchitis [Unknown]
  - Polyarthritis [Unknown]
  - Pyrexia [Unknown]
  - Treatment failure [Unknown]
  - Vasculitis [Unknown]
  - Off label use [Unknown]
